FAERS Safety Report 5935932-6 (Version None)
Quarter: 2008Q4

REPORT INFORMATION
  Report Type: 
  Country: None (occurrence: None)
  Receive Date: 20081030
  Receipt Date: 20081017
  Transmission Date: 20090506
  Serious: Yes (Hospitalization)
  Sender: FDA-Public Use
  Company Number: DE-ELI_LILLY_AND_COMPANY-DE200810004023

PATIENT
  Age: 11 Year
  Sex: Female

DRUGS (3)
  1. STRATTERA [Suspect]
     Indication: ATTENTION DEFICIT/HYPERACTIVITY DISORDER
     Dosage: UNK, UNKNOWN
     Route: 065
  2. STRATTERA [Interacting]
     Dosage: 40 MG, DAILY (1/D)
     Route: 048
     Dates: start: 20080901, end: 20081014
  3. MEDIKINET [Interacting]
     Dosage: 20 MG, DAILY (1/D)
     Route: 065

REACTIONS (2)
  - ANGER [None]
  - DRUG INTERACTION [None]
